FAERS Safety Report 6454700-2 (Version None)
Quarter: 2009Q4

REPORT INFORMATION
  Report Type: 
  Country: None (occurrence: None)
  Receive Date: 20091118
  Receipt Date: 20090129
  Transmission Date: 20100525
  Serious: Yes (Life-Threatening, Hospitalization, Other)
  Sender: FDA-Public Use
  Company Number: JPI-P-005541

PATIENT
  Age: 76 Year
  Sex: Male

DRUGS (7)
  1. XYREM [Suspect]
     Indication: CATAPLEXY
     Dosage: 4.5 GM (2.25 GM, 2 IN 1 D), ORAL; 4 GM (2 GM, 2 IN 1 D), ORAL
     Route: 048
     Dates: start: 20081017, end: 20081001
  2. XYREM [Suspect]
     Indication: CATAPLEXY
     Dosage: 4.5 GM (2.25 GM, 2 IN 1 D), ORAL; 4 GM (2 GM, 2 IN 1 D), ORAL
     Route: 048
     Dates: start: 20091026
  3. ACETYLSALICYLATE LYSINE [Suspect]
     Indication: DRUG USE FOR UNKNOWN INDICATION
  4. TRIMETAZIDINE HYDROCHLORIDE [Suspect]
     Indication: DRUG USE FOR UNKNOWN INDICATION
  5. ATORVASTATIN CALCIUM [Suspect]
     Indication: HYPERCHOLESTEROLAEMIA
  6. ALLOPURINOL [Concomitant]
  7. CLOPIDOGREL [Concomitant]

REACTIONS (5)
  - DIZZINESS [None]
  - FATIGUE [None]
  - HEADACHE [None]
  - MYOCARDIAL INFARCTION [None]
  - SENSATION OF HEAVINESS [None]
